FAERS Safety Report 5829773-8 (Version None)
Quarter: 2008Q3

REPORT INFORMATION
  Report Type: 
  Country: None (occurrence: None)
  Receive Date: 20080729
  Receipt Date: 20080715
  Transmission Date: 20090109
  Serious: Yes (Hospitalization)
  Sender: FDA-Public Use
  Company Number: 2008BI018049

PATIENT
  Sex: Female
  Weight: 124.7392 kg

DRUGS (8)
  1. TYSABRI [Suspect]
     Indication: MULTIPLE SCLEROSIS
     Dosage: 300 MG; QM; IV
     Route: 042
     Dates: start: 20080630
  2. PANTOPRAZOLE SODIUM [Concomitant]
  3. CITALOPRAM HYDROBROMIDE [Concomitant]
  4. LEVOTHYROXINE SODIUM [Concomitant]
  5. BACLOFEN [Concomitant]
  6. ZOLPIDEM [Concomitant]
  7. SIMVASTATIN [Concomitant]
  8. ALPRAZOLAM [Concomitant]

REACTIONS (5)
  - ABASIA [None]
  - DECUBITUS ULCER [None]
  - MOBILITY DECREASED [None]
  - RASH [None]
  - VOMITING [None]
